FAERS Safety Report 24180257 (Version 4)
Quarter: 2024Q3

REPORT INFORMATION
  Report Type: Spontaneous
  Country: US (occurrence: US)
  Receive Date: 20240806
  Receipt Date: 20240912
  Transmission Date: 20241016
  Serious: Yes (Hospitalization, Other)
  Sender: MERCK
  Company Number: US-009507513-2408USA001146

PATIENT
  Age: 1 Day
  Weight: 5.215 kg

DRUGS (5)
  1. KEYTRUDA [Suspect]
     Active Substance: PEMBROLIZUMAB
     Dosage: 200 MG EVERY 21 DAYS
     Route: 064
     Dates: start: 20220504, end: 20230524
  2. ADRIAMYCIN [Suspect]
     Active Substance: DOXORUBICIN HYDROCHLORIDE
     Dosage: UNK
     Route: 064
  3. CYCLOPHOSPHAMIDE [Suspect]
     Active Substance: CYCLOPHOSPHAMIDE
     Route: 064
  4. PACLITAXEL [Suspect]
     Active Substance: PACLITAXEL
     Route: 064
  5. CARBOPLATIN [Suspect]
     Active Substance: CARBOPLATIN
     Route: 064

REACTIONS (7)
  - Neonatal pulmonary hypertension [Recovered/Resolved]
  - Neonatal respiratory distress [Unknown]
  - Hydrops foetalis [Unknown]
  - Generalised oedema [Recovered/Resolved]
  - Premature baby [Recovered/Resolved]
  - Rhesus incompatibility [Recovered/Resolved]
  - Foetal exposure during pregnancy [Recovered/Resolved]

NARRATIVE: CASE EVENT DATE: 20240701
